FAERS Safety Report 4991130-4 (Version None)
Quarter: 2006Q1

REPORT INFORMATION
  Report Type: 
  Country: None (occurrence: None)
  Receive Date: 20060314
  Receipt Date: 20051207
  Transmission Date: 20060701
  Serious: No
  Sender: FDA-Public Use
  Company Number: 2005-02457

PATIENT
  Age: 65 Year
  Sex: Female
  Weight: 90.7 kg

DRUGS (5)
  1. VELCADE [Suspect]
     Indication: MULTIPLE MYELOMA
     Dosage: 2.60 MG, IV BOLUS; 3.00 MG, IV BOLUS
     Route: 040
     Dates: start: 20050101, end: 20051121
  2. VELCADE [Suspect]
     Indication: MULTIPLE MYELOMA
     Dosage: 2.60 MG, IV BOLUS; 3.00 MG, IV BOLUS
     Route: 040
     Dates: start: 20050301
  3. PROCRIT [Concomitant]
  4. ZOMETA [Concomitant]
  5. TYLENOL PM (DIPHENHYDRAMINE, PARACETAMOL) [Concomitant]

REACTIONS (8)
  - COUGH [None]
  - DIARRHOEA [None]
  - NAUSEA [None]
  - PYREXIA [None]
  - RASH [None]
  - RED BLOOD CELL COUNT DECREASED [None]
  - URTICARIA [None]
  - VOMITING [None]
